FAERS Safety Report 5794604-1 (Version None)
Quarter: 2008Q2

REPORT INFORMATION
  Report Type: 
  Country: None (occurrence: None)
  Receive Date: 20080625
  Receipt Date: 20080617
  Transmission Date: 20081010
  Serious: Yes (Other)
  Sender: FDA-Public Use
  Company Number: 2008AP001556

PATIENT
  Age: 33 Year
  Sex: Female

DRUGS (4)
  1. CITALOPRAM HYDROBROMIDE [Suspect]
     Indication: POSTPARTUM DEPRESSION
     Dosage: 20 MG PO
     Route: 048
     Dates: start: 20080207, end: 20080401
  2. OMEPRAZOLE [Concomitant]
  3. ZOPICLONE (ZOPICLONE) [Concomitant]
  4. FLUOXETINE [Concomitant]

REACTIONS (2)
  - COUGH [None]
  - HAEMOPTYSIS [None]
